FAERS Safety Report 8691960 (Version 2)
Quarter: 2012Q4

REPORT INFORMATION
  Report Type: 
  Country: BR (occurrence: BR)
  Receive Date: 20120730
  Receipt Date: 20121018
  Transmission Date: 20130627
  Serious: Yes (Other)
  Sender: FDA-Public Use
  Company Number: BR-ASTRAZENECA-2012SE52073

PATIENT
  Age: 79 Year
  Sex: Female
  Weight: 62 kg

DRUGS (11)
  1. ATENOLOL [Suspect]
     Indication: HYPERTENSION
     Route: 048
  2. CANDESARTAN CILEXETIL [Suspect]
     Indication: HYPERTENSION
     Route: 048
  3. CANDESARTAN CILEXETIL [Suspect]
     Indication: HYPERTENSION
     Dosage: 16 MG DAILY, GENERIC
     Route: 048
     Dates: end: 20120721
  4. CANDESARTAN CILEXETIL [Suspect]
     Indication: HYPERTENSION
     Route: 048
  5. CANDESARTAN CILEXETIL [Suspect]
     Indication: HYPERTENSION
     Route: 048
  6. ADALAT [Concomitant]
     Route: 048
  7. ASPIRINA PREVENT [Concomitant]
     Route: 048
  8. GLIFAGE [Concomitant]
     Route: 048
  9. LIPITOR [Concomitant]
     Route: 048
  10. PLAVIX [Concomitant]
     Route: 048
  11. VASTAREL [Concomitant]
     Route: 048

REACTIONS (1)
  - Coronary artery occlusion [Unknown]
